FAERS Safety Report 17327764 (Version 1)
Quarter: 2020Q1

REPORT INFORMATION
  Report Type: Spontaneous
  Country: PT (occurrence: PT)
  Receive Date: 20200127
  Receipt Date: 20200127
  Transmission Date: 20200409
  Serious: Yes (Hospitalization, Other)
  Sender: FDA-Public Use
  Company Number: PT-MYLANLABS-2020M1008547

PATIENT
  Age: 71 Year
  Sex: Female

DRUGS (1)
  1. CIPROFLOXACIN. [Suspect]
     Active Substance: CIPROFLOXACIN
     Indication: INTERVERTEBRAL DISCITIS
     Dosage: UNK
     Dates: start: 2017

REACTIONS (3)
  - Seizure [Unknown]
  - Subarachnoid haemorrhage [Recovered/Resolved]
  - Iatrogenic injury [Unknown]

NARRATIVE: CASE EVENT DATE: 201808
